FAERS Safety Report 14401479 (Version 3)
Quarter: 2019Q3

REPORT INFORMATION
  Report Type: Spontaneous
  Country: DE (occurrence: DE)
  Receive Date: 20180117
  Receipt Date: 20190828
  Transmission Date: 20191004
  Serious: Yes (Other)
  Sender: FDA-Public Use
  Company Number: DE-TORRENT-00007616

PATIENT
  Age: 34 Year
  Sex: Female
  Weight: 77 kg

DRUGS (4)
  1. FOLIO FORTE (NEM) [Concomitant]
     Indication: PROPHYLAXIS OF NEURAL TUBE DEFECT
     Dosage: 100 [MG/4WK ]
     Route: 048
  2. L-THYROXIN [Concomitant]
     Active Substance: LEVOTHYROXINE SODIUM
     Indication: HYPOTHYROIDISM
     Dosage: 100 [MG/4WK]
     Route: 048
     Dates: start: 20160610, end: 20170322
  3. RISPERIDON [Suspect]
     Active Substance: RISPERIDONE
     Indication: SCHIZOPHRENIA
     Dosage: 100 [MG/4WK ]
     Route: 048
     Dates: start: 20160715, end: 20170322
  4. XEPLION [Concomitant]
     Active Substance: PALIPERIDONE PALMITATE
     Indication: SCHIZOPHRENIA
     Dosage: 100 [MG/4WK ]
     Route: 030

REACTIONS (2)
  - Exposure during pregnancy [Unknown]
  - Gestational diabetes [Recovered/Resolved]

NARRATIVE: CASE EVENT DATE: 20160715
